FAERS Safety Report 8773261 (Version 2)
Quarter: 2012Q4

REPORT INFORMATION
  Report Type: 
  Country: US (occurrence: US)
  Receive Date: 20120907
  Receipt Date: 20120926
  Transmission Date: 20130627
  Serious: Yes (Life-Threatening, Hospitalization)
  Sender: FDA-Public Use
  Company Number: US-009507513-1209USA001694

PATIENT
  Age: 46 Year
  Sex: Male

DRUGS (2)
  1. CLARITIN [Suspect]
     Indication: OROPHARYNGEAL PAIN
     Dosage: 10 mg, qd
     Route: 048
     Dates: start: 20120831, end: 20120901
  2. CLARITIN [Suspect]
     Indication: HYPERSENSITIVITY

REACTIONS (9)
  - Hypertension [Recovering/Resolving]
  - Burning sensation [Recovering/Resolving]
  - Pruritus [Recovering/Resolving]
  - Hyperhidrosis [Recovering/Resolving]
  - Nervousness [Recovering/Resolving]
  - Oropharyngeal pain [Recovering/Resolving]
  - Retching [Recovering/Resolving]
  - Feeling hot [Recovering/Resolving]
  - Heart rate increased [Recovering/Resolving]
